FAERS Safety Report 20577795 (Version 2)
Quarter: 2022Q1

REPORT INFORMATION
  Report Type: Spontaneous
  Country: US (occurrence: US)
  Receive Date: 20220310
  Receipt Date: 20220323
  Transmission Date: 20220424
  Serious: Yes (Hospitalization)
  Sender: FDA-Public Use
  Company Number: US-TEVA-2022-US-2014112

PATIENT
  Age: 20 Year
  Sex: Male

DRUGS (8)
  1. BLEOMYCIN [Suspect]
     Active Substance: BLEOMYCIN SULFATE
     Indication: Testicular yolk sac tumour
     Dosage: BEP REGIMEN, TWO CYCLES
     Route: 065
  2. BLEOMYCIN [Suspect]
     Active Substance: BLEOMYCIN SULFATE
     Indication: Mediastinum neoplasm
  3. CISPLATIN [Concomitant]
     Active Substance: CISPLATIN
     Indication: Testicular yolk sac tumour
     Dosage: BEP REGIMEN, TWO CYCLES
     Route: 065
  4. CISPLATIN [Concomitant]
     Active Substance: CISPLATIN
     Indication: Mediastinum neoplasm
     Dosage: VIP REGIMEN, TWO CYCLES
     Route: 065
  5. ETOPOSIDE [Concomitant]
     Active Substance: ETOPOSIDE
     Indication: Testicular yolk sac tumour
     Dosage: BEP REGIMEN, TWO CYCLES
     Route: 065
  6. ETOPOSIDE [Concomitant]
     Active Substance: ETOPOSIDE
     Indication: Mediastinum neoplasm
     Dosage: VIP REGIMEN, TWO CYCLES
     Route: 065
  7. NAPROXEN [Concomitant]
     Active Substance: NAPROXEN
     Indication: Pericarditis
     Route: 065
  8. COLCHICINE [Concomitant]
     Active Substance: COLCHICINE
     Indication: Pericarditis
     Route: 065

REACTIONS (2)
  - Pleural effusion [Recovering/Resolving]
  - Atelectasis [Recovering/Resolving]
